FAERS Safety Report 7803915-7 (Version None)
Quarter: 2011Q4

REPORT INFORMATION
  Report Type: 
  Country: None (occurrence: None)
  Receive Date: 20111010
  Receipt Date: 20111003
  Transmission Date: 20120403
  Serious: Yes (Disabling)
  Sender: FDA-Public Use
  Company Number: GB-PFIZER INC-2011133119

PATIENT
  Age: 75 Year
  Sex: Male
  Weight: 72 kg

DRUGS (8)
  1. IRINOTECAN HCL [Suspect]
     Dosage: 320 MG, CYCLIC
     Route: 042
  2. FLUOROURACIL [Suspect]
     Dosage: 2100 MG, CYCLIC
     Dates: start: 20110104
  3. DEXAMETHASONE [Concomitant]
  4. ONDANSETRON [Concomitant]
  5. FLUOROURACIL [Suspect]
     Dosage: 600 MG, UNK
     Dates: start: 20101220, end: 20101220
  6. ASPIRIN [Concomitant]
  7. FLUOROURACIL [Suspect]
     Dosage: 2800 MG, CYCLIC
     Dates: start: 20110413
  8. IRINOTECAN HCL [Suspect]
     Dosage: 260 MG, CYCLIC
     Route: 042
     Dates: start: 20101220

REACTIONS (1)
  - PULMONARY FIBROSIS [None]
